FAERS Safety Report 9606877 (Version 1)
Quarter: 2013Q4

REPORT INFORMATION
  Report Type: Spontaneous
  Country: US (occurrence: US)
  Receive Date: 20131008
  Receipt Date: 20131008
  Transmission Date: 20140711
  Serious: No
  Sender: FDA-Public Use
  Company Number: US-AMGEN-USASP2013061077

PATIENT
  Age: 64 Year
  Sex: Female

DRUGS (2)
  1. PROLIA [Suspect]
     Indication: OSTEOPOROSIS POSTMENOPAUSAL
     Dosage: UNK
     Route: 065
     Dates: start: 201209
  2. SYNTHROID [Concomitant]
     Indication: THYROID DISORDER

REACTIONS (6)
  - Heart rate increased [Unknown]
  - Palpitations [Unknown]
  - Heart rate irregular [Unknown]
  - Abdominal pain lower [Unknown]
  - Abdominal distension [Unknown]
  - Gastrointestinal disorder [Unknown]
